FAERS Safety Report 8830553 (Version 1)
Quarter: 2012Q4

REPORT INFORMATION
  Report Type: 
  Country: JP (occurrence: JP)
  Receive Date: 20121009
  Receipt Date: 20121009
  Transmission Date: 20130627
  Serious: Yes (Other)
  Sender: FDA-Public Use
  Company Number: JP-AMGEN-JPNSP2012063299

PATIENT
  Age: 46 Year
  Sex: Male

DRUGS (4)
  1. ARANESP [Suspect]
     Indication: NEPHROGENIC ANAEMIA
     Dosage: 60 mug, qwk
     Route: 040
     Dates: start: 20110302
  2. ARANESP [Suspect]
     Dosage: 40 mug, qwk
     Route: 040
     Dates: start: 20110311
  3. ARANESP [Suspect]
     Dosage: 20 mug, qwk
     Route: 040
     Dates: start: 20110325
  4. ARANESP [Suspect]
     Dosage: 10 mug, qwk
     Route: 040
     Dates: start: 20110408

REACTIONS (1)
  - Aplasia pure red cell [Recovered/Resolved]
